FAERS Safety Report 20059193 (Version 4)
Quarter: 2022Q1

REPORT INFORMATION
  Report Type: Spontaneous
  Country: GB (occurrence: GB)
  Receive Date: 20211111
  Receipt Date: 20220223
  Transmission Date: 20220423
  Serious: Yes (Hospitalization, Disabling, Other)
  Sender: FDA-Public Use
  Company Number: GB-ORGANON-O2111GBR000040

PATIENT
  Age: 78 Year
  Sex: Female
  Weight: 61.6 kg

DRUGS (23)
  1. ALENDRONATE [Suspect]
     Active Substance: ALENDRONATE SODIUM
     Indication: Coeliac disease
     Dosage: 70 MILLIGRAM
     Route: 048
     Dates: start: 20200331, end: 20211004
  2. ALENDRONATE [Suspect]
     Active Substance: ALENDRONATE SODIUM
     Indication: Blood cholesterol
     Dosage: UNK
     Route: 048
  3. ALENDRONATE [Suspect]
     Active Substance: ALENDRONATE SODIUM
     Indication: Coeliac disease
     Dosage: UNK, QW
     Route: 048
     Dates: start: 20200331, end: 20211004
  4. ALENDRONATE [Suspect]
     Active Substance: ALENDRONATE SODIUM
     Indication: Osteoporosis
  5. CLOPIDOGREL BISULFATE [Suspect]
     Active Substance: CLOPIDOGREL BISULFATE
     Indication: Product used for unknown indication
     Dosage: 1 DOSAGE FORM, QD (TAKE ONE DAILY, 56 TABLET), START 18-NOV-2021
     Route: 048
     Dates: end: 20211202
  6. ACETAMINOPHEN [Suspect]
     Active Substance: ACETAMINOPHEN
     Indication: Pain
     Dosage: UNK, QID (TAKE 1-2 TABLETS TO BE TAKEN), START 27-SEP-2021
     Route: 048
     Dates: end: 20211122
  7. ACETAMINOPHEN [Suspect]
     Active Substance: ACETAMINOPHEN
     Indication: Osteoarthritis
     Dosage: UNK
     Route: 048
  8. ACETAMINOPHEN [Suspect]
     Active Substance: ACETAMINOPHEN
     Indication: Pyrexia
  9. MIRTAZAPINE [Suspect]
     Active Substance: MIRTAZAPINE
     Indication: Product used for unknown indication
     Dosage: 1 DOSAGE FORM, QD (1 DOSAGE FORM, EVERY NIGHT (1 NOCTE)
     Route: 048
     Dates: start: 20201129
  10. LANSOPRAZOLE [Suspect]
     Active Substance: LANSOPRAZOLE
     Indication: Product used for unknown indication
     Dosage: 1 DOSAGE FORM, QD (TAKE ONE ONCE DAILY WHILST TAKIN), START 22-NOV-2021
     Route: 048
     Dates: end: 20211122
  11. ATORVASTATIN [Suspect]
     Active Substance: ATORVASTATIN
     Indication: Product used for unknown indication
     Dosage: 1 DOSAGE FORM, QD (1 TO BE TAKEN EACH NIGHT, 56 TABLET), START 18-NOV-2021
     Route: 048
     Dates: end: 20211202
  12. IBUPROFEN [Suspect]
     Active Substance: IBUPROFEN
     Indication: Arthralgia
     Dosage: 100 GRAM, TID (100 GRAM, TID (3 TIMES PER DAY) )
     Route: 048
     Dates: start: 20200721, end: 20210913
  13. CALCIUM CARBONATE\CHOLECALCIFEROL [Suspect]
     Active Substance: CALCIUM CARBONATE\CHOLECALCIFEROL
     Indication: Product used for unknown indication
     Dosage: 1 DOSAGE FORM, BID (1 TO BE TAKEN TWICE DAILY, 112 TABLET), START 22-NOV-2021
     Route: 048
     Dates: end: 20211122
  14. ASPIRIN [Suspect]
     Active Substance: ASPIRIN
     Indication: Product used for unknown indication
     Dosage: 1 DOSAGE FORM, QD (TAKE ONE DAILY, 56 TABLETS), START 18-NOV-2021
     Route: 048
     Dates: end: 20211202
  15. RAMIPRIL [Suspect]
     Active Substance: RAMIPRIL
     Indication: Hypertension
     Dosage: 1 DOSAGE FORM, QD (TAKE ONE DAILY) START 22-NOV-2021
     Route: 048
     Dates: end: 20211122
  16. CALCIUM CARBONATE\CHOLECALCIFEROL [Concomitant]
     Active Substance: CALCIUM CARBONATE\CHOLECALCIFEROL
     Indication: Blood calcium
     Dosage: UNK
     Route: 048
  17. ALENDRONATE SODIUM [Concomitant]
     Active Substance: ALENDRONATE SODIUM
     Indication: Blood cholesterol
     Dosage: UNK
     Route: 048
  18. CETIRIZINE [Concomitant]
     Active Substance: CETIRIZINE HYDROCHLORIDE
     Indication: Seasonal allergy
     Dosage: UNK
     Route: 048
  19. CETIRIZINE [Concomitant]
     Active Substance: CETIRIZINE HYDROCHLORIDE
     Indication: Mood altered
     Dosage: 1 DOSAGE FORM, QD (1 DOSAGE FORM, QD (TAKE ONE DAILY))
     Route: 048
     Dates: start: 20180226, end: 20210913
  20. CITALOPRAM HYDROCHLORIDE [Concomitant]
     Active Substance: CITALOPRAM HYDROCHLORIDE
     Indication: Mood altered
     Dosage: UNK
     Route: 048
  21. INSULIN GLARGINE [Concomitant]
     Active Substance: INSULIN GLARGINE
     Indication: Type 2 diabetes mellitus
     Dosage: UNK
     Route: 048
  22. INSULIN GLARGINE [Concomitant]
     Active Substance: INSULIN GLARGINE
     Dosage: 100 INTERNATIONAL UNIT PER MILLILITRE, 100 INTERNATIONAL UNIT PER MILLILITRE, SOLUTION FOR
     Route: 048
     Dates: start: 20180226, end: 20210802
  23. SIMVASTATIN [Concomitant]
     Active Substance: SIMVASTATIN
     Indication: Blood cholesterol
     Dosage: UNK
     Route: 048

REACTIONS (23)
  - Angiopathy [Unknown]
  - Mobility decreased [Not Recovered/Not Resolved]
  - General physical health deterioration [Not Recovered/Not Resolved]
  - Post viral fatigue syndrome [Unknown]
  - Malaise [Not Recovered/Not Resolved]
  - Blood calcium decreased [Not Recovered/Not Resolved]
  - Product use in unapproved indication [Unknown]
  - Off label use [Unknown]
  - Arthralgia [Unknown]
  - Muscle twitching [Unknown]
  - Fatigue [Unknown]
  - Balance disorder [Unknown]
  - Fall [Unknown]
  - Coordination abnormal [Unknown]
  - Labyrinthitis [Not Recovered/Not Resolved]
  - Arthritis [Not Recovered/Not Resolved]
  - Loose tooth [Not Recovered/Not Resolved]
  - Tooth fracture [Not Recovered/Not Resolved]
  - Nausea [Unknown]
  - Noninfective gingivitis [Unknown]
  - Asthenia [Unknown]
  - Constipation [Not Recovered/Not Resolved]
  - Osteitis [Unknown]

NARRATIVE: CASE EVENT DATE: 20210101
